FAERS Safety Report 8162312-8 (Version None)
Quarter: 2012Q1

REPORT INFORMATION
  Report Type: 
  Country: None (occurrence: None)
  Receive Date: 20120224
  Receipt Date: 20110428
  Transmission Date: 20120608
  Serious: No
  Sender: FDA-Public Use
  Company Number: US-MYLANLABS-2011S1006411

PATIENT
  Age: 81 Year
  Sex: Female
  Weight: 53.98 kg

DRUGS (2)
  1. CHLORDIAZEPOXIDE [Concomitant]
     Route: 048
  2. HYDROCHLOROTHIAZIDE [Suspect]
     Indication: BLOOD PRESSURE INCREASED
     Route: 048
     Dates: start: 20100101

REACTIONS (1)
  - GAIT DISTURBANCE [None]
